FAERS Safety Report 6544520-2 (Version None)
Quarter: 2010Q1

REPORT INFORMATION
  Report Type: 
  Country: None (occurrence: None)
  Receive Date: 20100121
  Receipt Date: 20100112
  Transmission Date: 20100710
  Serious: Yes (Hospitalization, Other)
  Sender: FDA-Public Use
  Company Number: GB-JNJFOC-20080106738

PATIENT
  Sex: Female
  Weight: 40.8 kg

DRUGS (5)
  1. REMICADE [Suspect]
     Indication: CROHN'S DISEASE
     Route: 042
  2. REMICADE [Suspect]
     Route: 042
  3. AZATHIOPRINE [Suspect]
     Indication: CROHN'S DISEASE
     Route: 048
  4. ASACOL [Concomitant]
     Indication: PROPHYLAXIS
  5. DOMPERIDONE [Concomitant]
     Indication: NAUSEA

REACTIONS (2)
  - CROHN'S DISEASE [None]
  - MENINGITIS LISTERIA [None]
